FAERS Safety Report 8505604-2 (Version None)
Quarter: 2012Q3

REPORT INFORMATION
  Report Type: 
  Country: None (occurrence: None)
  Receive Date: 20120712
  Receipt Date: 20120703
  Transmission Date: 20120928
  Serious: Yes (Other)
  Sender: FDA-Public Use
  Company Number: JP-VERTEX PHARMACEUTICALS INC.-AE-2012-009869

PATIENT
  Age: 66 Year
  Sex: Male

DRUGS (1)
  1. TELAVIC (TELAPREVIR) [Suspect]
     Route: 048
     Dates: start: 20120626, end: 20120629

REACTIONS (1)
  - BLOOD CREATININE INCREASED [None]
